FAERS Safety Report 14132255 (Version 1)
Quarter: 2017Q4

REPORT INFORMATION
  Report Type: Spontaneous
  Country: TH (occurrence: TH)
  Receive Date: 20171026
  Receipt Date: 20171026
  Transmission Date: 20180321
  Serious: Yes (Other)
  Sender: FDA-Public Use
  Company Number: TH-MYLANLABS-2017M1066838

PATIENT
  Age: 1 Year
  Sex: Female

DRUGS (1)
  1. PAMIDRONATE [Suspect]
     Active Substance: PAMIDRONATE DISODIUM
     Indication: BONE DEFORMITY
     Dosage: 7.2 MG/KG/YEAR EVERY 2 MONTHS
     Route: 042

REACTIONS (1)
  - Bone disorder [Unknown]
